FAERS Safety Report 22150123 (Version 2)
Quarter: 2024Q1

REPORT INFORMATION
  Report Type: Report from Study
  Country: CL (occurrence: CL)
  Receive Date: 20230329
  Receipt Date: 20240101
  Transmission Date: 20240410
  Serious: Yes (Hospitalization, Other)
  Sender: FDA-Public Use
  Company Number: CL-ABBVIE-4706730

PATIENT
  Sex: Female

DRUGS (8)
  1. HUMIRA [Suspect]
     Active Substance: ADALIMUMAB
     Indication: Rheumatoid arthritis
     Dosage: FORM STRENGTH: 40MG
     Route: 058
     Dates: start: 20120912, end: 20230312
  2. HUMIRA [Suspect]
     Active Substance: ADALIMUMAB
     Dosage: FORM STRENGTH: 40MG
     Route: 058
     Dates: start: 20231206
  3. HUMIRA [Suspect]
     Active Substance: ADALIMUMAB
     Dosage: FIRST ADMIN DATE-2023; FORM STRENGTH: 40MG
     Route: 058
     Dates: end: 202310
  4. CELEBRA [Concomitant]
     Active Substance: CELECOXIB
     Indication: Product used for unknown indication
  5. PREDNISONE [Concomitant]
     Active Substance: PREDNISONE
     Indication: Product used for unknown indication
  6. LORATADINE [Concomitant]
     Active Substance: LORATADINE
     Indication: Product used for unknown indication
  7. CALCIUM [Concomitant]
     Active Substance: CALCIUM
     Indication: Product used for unknown indication
  8. SULFASALAZINE [Concomitant]
     Active Substance: SULFASALAZINE
     Indication: Product used for unknown indication

REACTIONS (9)
  - Pharyngitis [Recovered/Resolved]
  - Musculoskeletal disorder [Unknown]
  - Nervous system disorder [Unknown]
  - Dyspnoea [Unknown]
  - Procedural complication [Unknown]
  - Surgery [Unknown]
  - Coma [Unknown]
  - Pharyngitis [Recovered/Resolved]
  - Surgery [Unknown]

NARRATIVE: CASE EVENT DATE: 20230101
